FAERS Safety Report 4762658-7 (Version None)
Quarter: 2005Q3

REPORT INFORMATION
  Report Type: 
  Country: None (occurrence: None)
  Receive Date: 20050907
  Receipt Date: 20050829
  Transmission Date: 20060218
  Serious: Yes (Other)
  Sender: FDA-Public Use
  Company Number: PHBS2005CH12631

PATIENT
  Age: 71 Year
  Sex: Male

DRUGS (1)
  1. CARBAMAZEPINE [Suspect]
     Indication: TRIGEMINAL NEURALGIA
     Dosage: 1200 MG/DAY
     Route: 065

REACTIONS (32)
  - ABULIA [None]
  - ANTICONVULSANT DRUG LEVEL BELOW THERAPEUTIC [None]
  - APHASIA [None]
  - APRAXIA [None]
  - BRADYKINESIA [None]
  - CEREBRAL ATROPHY [None]
  - COGNITIVE DETERIORATION [None]
  - COGWHEEL RIGIDITY [None]
  - CONFUSIONAL STATE [None]
  - CREUTZFELDT-JAKOB DISEASE [None]
  - DEMENTIA [None]
  - DISORIENTATION [None]
  - DISTURBANCE IN ATTENTION [None]
  - DRUG INEFFECTIVE [None]
  - DRUG LEVEL INCREASED [None]
  - DRUG RESISTANCE [None]
  - DRUG TOXICITY [None]
  - DYSPHASIA [None]
  - ELECTROENCEPHALOGRAM ABNORMAL [None]
  - FALL [None]
  - FALSE POSITIVE LABORATORY RESULT [None]
  - HYPERSOMNIA [None]
  - LEUKOARAIOSIS [None]
  - MASKED FACIES [None]
  - MEMORY IMPAIRMENT [None]
  - MYOCLONUS [None]
  - PARKINSONISM [None]
  - PERSEVERATION [None]
  - POSTURE ABNORMAL [None]
  - PSYCHOMOTOR RETARDATION [None]
  - TOXIC INDUCED ENCEPHALOPATHY [None]
  - TREMOR [None]
